FAERS Safety Report 5750173-3 (Version None)
Quarter: 2008Q2

REPORT INFORMATION
  Report Type: 
  Country: None (occurrence: None)
  Receive Date: 20080527
  Receipt Date: 20080514
  Transmission Date: 20081010
  Serious: Yes (Other)
  Sender: FDA-Public Use
  Company Number: US-ELI_LILLY_AND_COMPANY-US200805002850

PATIENT
  Sex: Female

DRUGS (3)
  1. FORTEO [Suspect]
     Dates: end: 20050101
  2. COUMADIN [Concomitant]
     Dosage: 6 DAYS A WEEK
  3. COUMADIN [Concomitant]
     Dosage: 2.5 MG, UNKNOWN

REACTIONS (2)
  - ARTHRITIS [None]
  - MYOCARDIAL INFARCTION [None]
